FAERS Safety Report 7826599-0 (Version None)
Quarter: 2011Q4

REPORT INFORMATION
  Report Type: 
  Country: None (occurrence: None)
  Receive Date: 20111020
  Receipt Date: 20111011
  Transmission Date: 20120403
  Serious: Yes (Hospitalization)
  Sender: FDA-Public Use
  Company Number: TW-JNJFOC-20111006730

PATIENT
  Age: 67 Year
  Sex: Male

DRUGS (1)
  1. FENTANYL [Suspect]
     Indication: CHEST PAIN
     Route: 062

REACTIONS (1)
  - ECZEMA [None]
